FAERS Safety Report 14861977 (Version 16)
Quarter: 2025Q1

REPORT INFORMATION
  Report Type: Report from Study
  Country: CA (occurrence: CA)
  Receive Date: 20180508
  Receipt Date: 20250204
  Transmission Date: 20250408
  Serious: Yes (Hospitalization, Other)
  Sender: TAKEDA
  Company Number: CA-TAKEDA-2017TUS022266

PATIENT
  Age: 64 Year
  Sex: Female

DRUGS (29)
  1. VEDOLIZUMAB [Suspect]
     Active Substance: VEDOLIZUMAB
     Indication: Crohn^s disease
  2. VEDOLIZUMAB [Suspect]
     Active Substance: VEDOLIZUMAB
  3. VEDOLIZUMAB [Suspect]
     Active Substance: VEDOLIZUMAB
  4. VEDOLIZUMAB [Suspect]
     Active Substance: VEDOLIZUMAB
     Dosage: 300 MILLIGRAM, Q4WEEKS
     Dates: start: 20190115
  5. VEDOLIZUMAB [Suspect]
     Active Substance: VEDOLIZUMAB
     Dosage: 300 MILLIGRAM, Q4WEEKS
  6. VEDOLIZUMAB [Suspect]
     Active Substance: VEDOLIZUMAB
     Dosage: 300 MILLIGRAM, Q4WEEKS
  7. VEDOLIZUMAB [Suspect]
     Active Substance: VEDOLIZUMAB
     Dosage: 300 MILLIGRAM, Q4WEEKS
  8. VEDOLIZUMAB [Suspect]
     Active Substance: VEDOLIZUMAB
     Dosage: 300 MILLIGRAM, Q4WEEKS
  9. SOLIFENACIN [Concomitant]
     Active Substance: SOLIFENACIN
  10. IRBESARTAN [Concomitant]
     Active Substance: IRBESARTAN
  11. SYNTHROID [Concomitant]
     Active Substance: LEVOTHYROXINE SODIUM
  12. AMOXIL [Concomitant]
     Active Substance: AMOXICILLIN
  13. CHOLECALCIFEROL [Concomitant]
     Active Substance: CHOLECALCIFEROL
  14. ZOPICLONE [Concomitant]
     Active Substance: ZOPICLONE
  15. AMITRIPTYLINE [Concomitant]
     Active Substance: AMITRIPTYLINE
  16. SANDOZ-METOPROLOL [Concomitant]
  17. ATORVASTATIN [Concomitant]
     Active Substance: ATORVASTATIN
  18. JANUMET [Concomitant]
     Active Substance: METFORMIN HYDROCHLORIDE\SITAGLIPTIN PHOSPHATE
  19. ASPIRIN [Concomitant]
     Active Substance: ASPIRIN
  20. SODIUM BICARBONATE [Concomitant]
     Active Substance: SODIUM BICARBONATE
  21. IRON [Concomitant]
     Active Substance: IRON
  22. TERAZOSIN [Concomitant]
     Active Substance: TERAZOSIN HYDROCHLORIDE
  23. TERAZOSIN [Concomitant]
     Active Substance: TERAZOSIN HYDROCHLORIDE
  24. REPAGLINIDE [Concomitant]
     Active Substance: REPAGLINIDE
  25. PAROXETINE [Concomitant]
     Active Substance: PAROXETINE
  26. ROSUVASTATIN [Concomitant]
     Active Substance: ROSUVASTATIN
  27. BISOPROLOL [Concomitant]
     Active Substance: BISOPROLOL
  28. VITAMIN D [Concomitant]
     Active Substance: VITAMIN D NOS
  29. ARANESP [Concomitant]
     Active Substance: DARBEPOETIN ALFA

REACTIONS (16)
  - Bladder neoplasm [Unknown]
  - Kidney infection [Recovered/Resolved]
  - Post procedural fistula [Unknown]
  - Blood glucose abnormal [Recovered/Resolved]
  - Urinary tract infection [Recovered/Resolved]
  - Septic shock [Unknown]
  - Off label use [Unknown]
  - Nervousness [Not Recovered/Not Resolved]
  - Hypoglycaemia [Recovering/Resolving]
  - Fall [Recovering/Resolving]
  - Contusion [Recovering/Resolving]
  - Pain [Recovering/Resolving]
  - Blood pressure systolic increased [Unknown]
  - Cystitis [Not Recovered/Not Resolved]
  - Blood pressure increased [Unknown]
  - Headache [Unknown]

NARRATIVE: CASE EVENT DATE: 20190115
